FAERS Safety Report 19914026 (Version 2)
Quarter: 2021Q4

REPORT INFORMATION
  Report Type: Report from Study
  Country: GB (occurrence: GB)
  Receive Date: 20211005
  Receipt Date: 20211104
  Transmission Date: 20220303
  Serious: Yes (Death, Hospitalization)
  Sender: FDA-Public Use
  Company Number: GB-BIOGEN-2021BI01052200

PATIENT
  Age: 5 Month
  Sex: Female

DRUGS (1)
  1. SPINRAZA [Suspect]
     Active Substance: NUSINERSEN
     Indication: Spinal muscular atrophy
     Route: 065

REACTIONS (5)
  - Spinal muscular atrophy [Fatal]
  - Rhinovirus infection [Unknown]
  - Parainfluenzae virus infection [Unknown]
  - Moraxella infection [Unknown]
  - Staphylococcal infection [Unknown]

NARRATIVE: CASE EVENT DATE: 20200110
